FAERS Safety Report 10730428 (Version 1)
Quarter: 2015Q1

REPORT INFORMATION
  Report Type: Spontaneous
  Country: LB (occurrence: LB)
  Receive Date: 20150122
  Receipt Date: 20150122
  Transmission Date: 20150721
  Serious: Yes (Other)
  Sender: FDA-Public Use
  Company Number: PHHY2015LB006946

PATIENT
  Age: 34 Year
  Sex: Male

DRUGS (7)
  1. IMATINIB [Suspect]
     Active Substance: IMATINIB
     Indication: CHRONIC MYELOID LEUKAEMIA
     Dosage: 400 MG, QD
  2. AMN107 [Suspect]
     Active Substance: NILOTINIB
     Indication: CHRONIC MYELOID LEUKAEMIA
     Route: 065
  3. HIDROXIUREA [Concomitant]
     Active Substance: HYDROXYUREA
     Indication: CHRONIC MYELOID LEUKAEMIA
     Route: 065
  4. IMATINIB [Suspect]
     Active Substance: IMATINIB
     Dosage: 800 MG, QD
  5. DEPO-MEDROL [Concomitant]
     Active Substance: METHYLPREDNISOLONE ACETATE
     Indication: CHRONIC MYELOID LEUKAEMIA
     Route: 065
  6. CYTARABINE. [Concomitant]
     Active Substance: CYTARABINE
     Indication: CHRONIC MYELOID LEUKAEMIA
     Route: 065
  7. METHOTREXATE [Concomitant]
     Active Substance: METHOTREXATE
     Indication: CHRONIC MYELOID LEUKAEMIA
     Route: 065

REACTIONS (9)
  - Headache [Recovered/Resolved]
  - Blast crisis in myelogenous leukaemia [Unknown]
  - Drug ineffective [Unknown]
  - Chronic myeloid leukaemia [Unknown]
  - Deafness unilateral [Recovered/Resolved]
  - Drug resistance [Unknown]
  - Paraesthesia [Recovered/Resolved]
  - Muscular weakness [Recovered/Resolved]
  - Aphasia [Recovered/Resolved]
